FAERS Safety Report 8822907 (Version 1)
Quarter: 2012Q4

REPORT INFORMATION
  Report Type: Report from Study
  Country: DE (occurrence: DE)
  Receive Date: 20121003
  Receipt Date: 20121003
  Transmission Date: 20130627
  Serious: Yes (Death)
  Sender: FDA-Public Use
  Company Number: PHHO2012DE005289

PATIENT
  Sex: Male
  Weight: 83 kg

DRUGS (18)
  1. AFINITOR [Suspect]
     Indication: TRANSITIONAL CELL CARCINOMA
     Dosage: 10 mg, QD
     Route: 048
     Dates: start: 20111122
  2. PACLITAXEL [Suspect]
     Indication: TRANSITIONAL CELL CARCINOMA
     Dosage: 125 mg/m2, UNK
     Route: 048
     Dates: start: 20111122
  3. PALLADON [Concomitant]
     Dosage: 1.3 mg, TID
     Dates: end: 20120121
  4. FENTANYL [Concomitant]
     Dosage: 50 mg, BID
     Dates: start: 20120124, end: 20120124
  5. BISOPROLOL [Concomitant]
     Indication: HYPERTENSION
     Dosage: 5 mg, BID
  6. L-THYROXINE [Concomitant]
     Indication: HYPERTHYROIDISM
     Dosage: 10 D,QD
     Dates: end: 20120125
  7. ASS [Concomitant]
     Indication: TACHYARRHYTHMIA
     Dosage: 10 D, QD
     Dates: end: 20120125
  8. ASS [Concomitant]
     Indication: CORONARY ARTERY BYPASS
  9. SIMVASTATIN [Concomitant]
     Indication: CORONARY ARTERY BYPASS
     Dosage: 20, QD
     Dates: end: 20120125
  10. RAMIPRIL [Concomitant]
     Indication: HYPERTENSION
     Dosage: 1.25 QD
     Dates: end: 20120125
  11. RAMIPRIL [Concomitant]
     Indication: CORONARY ARTERY BYPASS
  12. TORSEMIDE [Concomitant]
     Indication: HYPERTENSION
     Dosage: 5, QD
  13. PANTOPRAZOLE [Concomitant]
     Dosage: 40 mg, QD
  14. DIGITOXIN [Concomitant]
     Indication: HYPERTENSION
     Dosage: 0.07,qd
  15. DIGITOXIN [Concomitant]
     Indication: CORONARY ARTERY BYPASS
  16. HEPARIN [Concomitant]
     Indication: TACHYARRHYTHMIA
     Dosage: 7500, bid
     Dates: start: 20120125
  17. HEPARIN [Concomitant]
     Indication: CORONARY ARTERY BYPASS
  18. AMLODIPINE [Concomitant]
     Indication: HYPERTENSION

REACTIONS (2)
  - Pulmonary embolism [Fatal]
  - Cardiac failure [Fatal]
